FAERS Safety Report 5314624-0 (Version None)
Quarter: 2007Q2

REPORT INFORMATION
  Report Type: 
  Country: None (occurrence: None)
  Receive Date: 20070427
  Receipt Date: 20070418
  Transmission Date: 20071010
  Serious: Yes (Life-Threatening, Hospitalization)
  Sender: FDA-Public Use
  Company Number: 111345ISR

PATIENT
  Age: 43 Year
  Sex: Male

DRUGS (2)
  1. CISPLATIN [Suspect]
     Indication: NASOPHARYNGEAL CANCER
     Dosage: 100 MG/M2 (0.5 MG/ML)
     Dates: start: 20050501, end: 20050501
  2. DEXAMETHASONE 0.5MG TAB [Suspect]
     Indication: NAUSEA
     Dosage: 8 MG (1.5 MG); ORAL
     Route: 048
     Dates: start: 20050501

REACTIONS (29)
  - ASTHENIA [None]
  - BLOOD CREATININE INCREASED [None]
  - BLOOD OSMOLARITY INCREASED [None]
  - BLOOD SODIUM INCREASED [None]
  - BLOOD UREA INCREASED [None]
  - BODY TEMPERATURE INCREASED [None]
  - CYANOSIS [None]
  - DEHYDRATION [None]
  - DIABETES MELLITUS INSULIN-DEPENDENT [None]
  - DIABETIC HYPERGLYCAEMIC COMA [None]
  - DIABETIC KETOACIDOSIS [None]
  - DISORIENTATION [None]
  - HALLUCINATION [None]
  - HEART RATE INCREASED [None]
  - HYPERGLYCAEMIA [None]
  - ILL-DEFINED DISORDER [None]
  - INCOHERENT [None]
  - LETHARGY [None]
  - MALIGNANT NEOPLASM PROGRESSION [None]
  - MUSCULOSKELETAL STIFFNESS [None]
  - MYALGIA [None]
  - NASOPHARYNGEAL CANCER [None]
  - ORAL INTAKE REDUCED [None]
  - ORAL MUCOSAL DISORDER [None]
  - PERIPHERAL COLDNESS [None]
  - RESPIRATORY FAILURE [None]
  - SKIN DISORDER [None]
  - URINARY INCONTINENCE [None]
  - VOMITING [None]
